FAERS Safety Report 5909599-7 (Version None)
Quarter: 2008Q4

REPORT INFORMATION
  Report Type: 
  Country: None (occurrence: None)
  Receive Date: 20081002
  Receipt Date: 20080918
  Transmission Date: 20090506
  Serious: Yes (Other)
  Sender: FDA-Public Use
  Company Number: TRP_05896_2008

PATIENT
  Sex: Female
  Weight: 64.4108 kg

DRUGS (9)
  1. RIBAVIRIN [Suspect]
     Indication: HEPATITIS C
     Dosage: 400 MG BID ORAL
     Route: 048
     Dates: start: 20071221, end: 20080606
  2. PEGASYS [Suspect]
     Indication: HEPATITIS C
     Dosage: 120 ?G 1X/WEEK SUBCUTANEOUS
     Route: 058
     Dates: start: 20071221, end: 20080606
  3. ZOLOFT [Concomitant]
  4. NORVASC [Concomitant]
  5. METOPROLOL TARTRATE [Concomitant]
  6. PRILOSEC [Concomitant]
  7. ZETIA [Concomitant]
  8. DIOVAN /01319601/ [Concomitant]
  9. BENADRYL [Concomitant]

REACTIONS (11)
  - BLOOD GLUCOSE INCREASED [None]
  - BLOOD PRESSURE INCREASED [None]
  - CANDIDIASIS [None]
  - COAGULOPATHY [None]
  - COUGH [None]
  - FATIGUE [None]
  - FULL BLOOD COUNT DECREASED [None]
  - HYPONATRAEMIA [None]
  - HYPOTHYROIDISM [None]
  - STOMATITIS [None]
  - VISION BLURRED [None]
